FAERS Safety Report 20012142 (Version 2)
Quarter: 2021Q4

REPORT INFORMATION
  Report Type: Report from Study
  Country: CA (occurrence: CA)
  Receive Date: 20211028
  Receipt Date: 20211102
  Transmission Date: 20220303
  Serious: No
  Sender: FDA-Public Use
  Company Number: CA-JNJFOC-20211043187

PATIENT
  Sex: Female

DRUGS (2)
  1. STELARA [Suspect]
     Active Substance: USTEKINUMAB
     Indication: Product used for unknown indication
     Route: 058
  2. STELARA [Suspect]
     Active Substance: USTEKINUMAB

REACTIONS (1)
  - Needle issue [Unknown]
